FAERS Safety Report 7824733-X (Version None)
Quarter: 2011Q4

REPORT INFORMATION
  Report Type: 
  Country: None (occurrence: None)
  Receive Date: 20111019
  Receipt Date: 20111011
  Transmission Date: 20120403
  Serious: Yes (Hospitalization, Other)
  Sender: FDA-Public Use
  Company Number: PHHY2011NL82093

PATIENT
  Sex: Male

DRUGS (10)
  1. CRESTOR [Concomitant]
  2. ZOMETA [Suspect]
     Dosage: 4 MG/5 ML 1X PER 28 DAYS
     Route: 042
     Dates: start: 20110818
  3. SELOKEEN [Concomitant]
  4. PREDNISOLONE [Concomitant]
  5. CALCIUM CARBONATE [Concomitant]
  6. TAMSULOSIN HCL [Concomitant]
  7. ZOMETA [Suspect]
     Dosage: 4 MG/5 ML 1X PER 28 DAYS
     Route: 042
     Dates: start: 20110914
  8. ZOMETA [Suspect]
     Dosage: 4 MG/5 ML 1X PER 28 DAYS
     Route: 042
     Dates: start: 20111011
  9. ZOMETA [Suspect]
     Indication: PROSTATE CANCER METASTATIC
     Dosage: 4 MG/5 ML 1X PER 28 DAYS
     Route: 042
     Dates: start: 20110721
  10. AMLODIPINE [Concomitant]

REACTIONS (4)
  - PYREXIA [None]
  - CYSTITIS NONINFECTIVE [None]
  - MALAISE [None]
  - INFLAMMATION [None]
